FAERS Safety Report 11507038 (Version 4)
Quarter: 2015Q4

REPORT INFORMATION
  Report Type: Spontaneous
  Country: US (occurrence: US)
  Receive Date: 20150915
  Receipt Date: 20151023
  Transmission Date: 20160304
  Serious: Yes (Hospitalization)
  Sender: FDA-Public Use
  Company Number: US-BIOGENIDEC-2015BI122591

PATIENT
  Age: 54 Year
  Sex: Female
  Weight: 70 kg

DRUGS (33)
  1. TECFIDERA [Suspect]
     Active Substance: DIMETHYL FUMARATE
     Indication: MULTIPLE SCLEROSIS
  2. AMPYRA [Concomitant]
     Active Substance: DALFAMPRIDINE
     Indication: GAIT DISTURBANCE
     Dates: start: 2010
  3. AMPYRA [Concomitant]
     Active Substance: DALFAMPRIDINE
     Indication: GAIT DISTURBANCE
     Route: 048
     Dates: start: 201309
  4. WELLBUTRIN [Concomitant]
     Active Substance: BUPROPION HYDROCHLORIDE
     Dates: start: 2010
  5. ZITHROMAX [Concomitant]
     Active Substance: AZITHROMYCIN DIHYDRATE
  6. BIFIDOBACTERIUM LACTIS [Concomitant]
  7. ASPIRIN. [Concomitant]
     Active Substance: ASPIRIN
     Dates: start: 201312
  8. H.P. ACTHAR [Concomitant]
     Active Substance: CORTICOTROPIN
     Indication: MULTIPLE SCLEROSIS
  9. ERYTHROMYCIN. [Concomitant]
     Active Substance: ERYTHROMYCIN
  10. ZOFRAN [Concomitant]
     Active Substance: ONDANSETRON HYDROCHLORIDE
  11. IBUPROFEN. [Concomitant]
     Active Substance: IBUPROFEN
  12. VICODIN [Concomitant]
     Active Substance: ACETAMINOPHEN\HYDROCODONE BITARTRATE
  13. NEXIUM [Concomitant]
     Active Substance: ESOMEPRAZOLE MAGNESIUM
  14. MAGALDRATE [Concomitant]
     Active Substance: MAGALDRATE
  15. CYMBALTA [Concomitant]
     Active Substance: DULOXETINE HYDROCHLORIDE
  16. HYDROCHLOROTHIAZIDE. [Concomitant]
     Active Substance: HYDROCHLOROTHIAZIDE
  17. SINGULAIR [Concomitant]
     Active Substance: MONTELUKAST SODIUM
  18. CAFFEINE. [Concomitant]
     Active Substance: CAFFEINE
     Indication: HEADACHE
  19. CALCIUM PLUS D [Concomitant]
     Active Substance: CALCIUM\VITAMIN D
  20. BIOTIN [Concomitant]
     Active Substance: BIOTIN
  21. MODAFINIL. [Concomitant]
     Active Substance: MODAFINIL
  22. EFFEXOR [Concomitant]
     Active Substance: VENLAFAXINE HYDROCHLORIDE
  23. FLAXSEED PRIMROSE OIL [Concomitant]
  24. TIZANIDINE. [Concomitant]
     Active Substance: TIZANIDINE
  25. ATENOLOL. [Concomitant]
     Active Substance: ATENOLOL
     Dates: start: 2004
  26. ASPIRIN. [Concomitant]
     Active Substance: ASPIRIN
     Dates: start: 201312
  27. LISINOPRIL. [Concomitant]
     Active Substance: LISINOPRIL
     Dates: start: 2010
  28. DIPHENHYDRAMINE. [Concomitant]
     Active Substance: DIPHENHYDRAMINE
     Indication: MULTIPLE ALLERGIES
  29. GINGER. [Concomitant]
     Active Substance: GINGER
     Indication: NAUSEA
  30. TYLENOL [Concomitant]
     Active Substance: ACETAMINOPHEN
     Indication: HEADACHE
  31. MOTRIN [Concomitant]
     Active Substance: IBUPROFEN
     Dates: start: 2012
  32. HYDROCODONE [Concomitant]
     Active Substance: HYDROCODONE
  33. VITAMIN D [Concomitant]
     Active Substance: CHOLECALCIFEROL

REACTIONS (30)
  - Multiple sclerosis relapse [Not Recovered/Not Resolved]
  - Oedema [Not Recovered/Not Resolved]
  - Multiple sclerosis [Not Recovered/Not Resolved]
  - Urinary incontinence [Unknown]
  - Depressed mood [Unknown]
  - Head injury [Unknown]
  - Fatigue [Not Recovered/Not Resolved]
  - Lower limb fracture [Unknown]
  - Bed rest [Unknown]
  - Abdominal pain upper [Recovered/Resolved]
  - Bursitis [Recovered/Resolved]
  - Peripheral swelling [Not Recovered/Not Resolved]
  - Abdominal discomfort [Unknown]
  - Back injury [Not Recovered/Not Resolved]
  - Mobility decreased [Not Recovered/Not Resolved]
  - Fall [Recovered/Resolved]
  - Motor dysfunction [Not Recovered/Not Resolved]
  - Hypersensitivity [Unknown]
  - Weight bearing difficulty [Unknown]
  - Flushing [Recovered/Resolved]
  - Nausea [Recovered/Resolved]
  - Asthenia [Not Recovered/Not Resolved]
  - Feeling of despair [Unknown]
  - Influenza [Unknown]
  - Skin disorder [Unknown]
  - Abdominal distension [Not Recovered/Not Resolved]
  - Muscle disorder [Unknown]
  - Concussion [Recovered/Resolved]
  - Alopecia [Recovered/Resolved]
  - Gastroenteritis viral [Unknown]

NARRATIVE: CASE EVENT DATE: 2014
